FAERS Safety Report 25670945 (Version 1)
Quarter: 2025Q3

REPORT INFORMATION
  Report Type: Report from Study
  Country: US (occurrence: US)
  Receive Date: 20250812
  Receipt Date: 20250812
  Transmission Date: 20251021
  Serious: No
  Sender: SUNOVION
  Company Number: US-SMPA-2025SPA009992

PATIENT
  Age: 77 Year
  Sex: Male

DRUGS (12)
  1. ORGOVYX [Suspect]
     Active Substance: RELUGOLIX
     Indication: Prostate cancer
     Route: 048
  2. ORGOVYX [Suspect]
     Active Substance: RELUGOLIX
     Route: 048
  3. AMIODARONE HYDROCHLORIDE [Concomitant]
     Active Substance: AMIODARONE HYDROCHLORIDE
  4. CALCIUM [Concomitant]
     Active Substance: CALCIUM
  5. CRESTOR [Concomitant]
     Active Substance: ROSUVASTATIN CALCIUM
  6. ELIQUIS [Concomitant]
     Active Substance: APIXABAN
  7. ERLEADA [Concomitant]
     Active Substance: APALUTAMIDE
  8. IRON [Concomitant]
     Active Substance: IRON
  9. HYDROCORTISONE [Concomitant]
     Active Substance: HYDROCORTISONE
  10. LORATADINE [Concomitant]
     Active Substance: LORATADINE
  11. NUBEQA [Concomitant]
     Active Substance: DAROLUTAMIDE
  12. TYLENOL [Concomitant]
     Active Substance: ACETAMINOPHEN

REACTIONS (2)
  - Pruritus [Unknown]
  - Fatigue [Unknown]
